FAERS Safety Report 7345492-3 (Version None)
Quarter: 2011Q1

REPORT INFORMATION
  Report Type: 
  Country: None (occurrence: None)
  Receive Date: 20110310
  Receipt Date: 20110310
  Transmission Date: 20110831
  Serious: Yes (Life-Threatening, Hospitalization, Other)
  Sender: FDA-Public Use
  Company Number: PHHO2010TR10717

PATIENT
  Sex: Female
  Weight: 86 kg

DRUGS (12)
  1. METFORMIN [Concomitant]
     Indication: DIABETES MELLITUS
  2. CORDARONE [Concomitant]
  3. ACZ885 [Suspect]
     Indication: DIABETES MELLITUS
     Dosage: 150 MG, UNK
     Route: 042
     Dates: start: 20100122, end: 20100708
  4. DIGOXIN [Concomitant]
     Indication: ATRIAL FIBRILLATION
  5. CORASPIN [Concomitant]
     Indication: ATRIAL FIBRILLATION
  6. DESAL [Concomitant]
  7. DIAMICRON [Concomitant]
  8. CARVEDILOL [Concomitant]
     Indication: HYPERTENSION
  9. LIPOFENE [Concomitant]
     Indication: HYPERLIPIDAEMIA
  10. LANSOR [Concomitant]
  11. LISINOPRIL [Concomitant]
     Indication: HYPERTENSION
  12. NEXIUM [Concomitant]
     Indication: GASTRITIS

REACTIONS (10)
  - HYPERGLYCAEMIA [None]
  - VASCULAR GRAFT [None]
  - BUNDLE BRANCH BLOCK RIGHT [None]
  - TACHYCARDIA [None]
  - ATRIAL FIBRILLATION [None]
  - HYPERSENSITIVITY [None]
  - ANGINA PECTORIS [None]
  - CONCOMITANT DISEASE PROGRESSION [None]
  - CARDIAC FAILURE CONGESTIVE [None]
  - URTICARIA [None]
